FAERS Safety Report 5763635-X (Version None)
Quarter: 2008Q2

REPORT INFORMATION
  Report Type: 
  Country: None (occurrence: None)
  Receive Date: 20080610
  Receipt Date: 20080103
  Transmission Date: 20081010
  Serious: No
  Sender: FDA-Public Use
  Company Number: US-BAYER-200810225NA

PATIENT
  Age: 27 Year
  Sex: Female
  Weight: 55 kg

DRUGS (1)
  1. MIRENA [Suspect]
     Route: 015
     Dates: start: 20071101, end: 20071201

REACTIONS (4)
  - ABDOMINAL PAIN LOWER [None]
  - BACK PAIN [None]
  - FATIGUE [None]
  - VAGINAL HAEMORRHAGE [None]
